FAERS Safety Report 9003467 (Version 1)
Quarter: 2013Q1

REPORT INFORMATION
  Report Type: Spontaneous
  Country: US (occurrence: US)
  Receive Date: 20130108
  Receipt Date: 20130108
  Transmission Date: 20140127
  Serious: Yes (Hospitalization)
  Sender: FDA-Public Use
  Company Number: US-INCYTE CORPORATION-2012IN002738

PATIENT
  Sex: Male

DRUGS (1)
  1. JAKAFI [Suspect]
     Dosage: 5 MG, BID
     Route: 048
     Dates: start: 2012

REACTIONS (4)
  - Pulmonary oedema [Unknown]
  - Platelet count decreased [Unknown]
  - Epistaxis [Unknown]
  - Diarrhoea [Unknown]
